FAERS Safety Report 10335720 (Version 1)
Quarter: 2014Q3

REPORT INFORMATION
  Report Type: Spontaneous
  Country: US (occurrence: US)
  Receive Date: 20140723
  Receipt Date: 20140723
  Transmission Date: 20150326
  Serious: No
  Sender: FDA-Public Use
  Company Number: US-BRISTOL-MYERS SQUIBB COMPANY-19051804

PATIENT
  Age: 85 Year
  Sex: Female
  Weight: 56.69 kg

DRUGS (10)
  1. MELOXICAM. [Concomitant]
     Active Substance: MELOXICAM
  2. WARFARIN SODIUM. [Suspect]
     Active Substance: WARFARIN SODIUM
     Dosage: 1DF: 2,3MG (ALTERNATIVELY).
  3. HCTZ [Concomitant]
     Active Substance: HYDROCHLOROTHIAZIDE
     Dosage: 1DF: 10/ 2.5 UNITS NOS
  4. NIACIN. [Concomitant]
     Active Substance: NIACIN
  5. DILTIAZEM HCL [Concomitant]
     Active Substance: DILTIAZEM HYDROCHLORIDE
     Indication: HYPERTENSION
  6. LISINOPRIL. [Concomitant]
     Active Substance: LISINOPRIL
  7. IRON [Concomitant]
     Active Substance: IRON
  8. VITAMINS [Concomitant]
     Active Substance: VITAMINS
  9. LEVOTHYROXINE [Concomitant]
     Active Substance: LEVOTHYROXINE
  10. FISH OIL [Concomitant]
     Active Substance: FISH OIL

REACTIONS (2)
  - International normalised ratio increased [Unknown]
  - Contusion [Unknown]
